FAERS Safety Report 19294791 (Version 1)
Quarter: 2021Q2

REPORT INFORMATION
  Report Type: Spontaneous
  Country: US (occurrence: US)
  Receive Date: 20210524
  Receipt Date: 20210524
  Transmission Date: 20210717
  Serious: No
  Sender: FDA-Public Use
  Company Number: US-BAYER-2021-145631

PATIENT
  Age: 49 Year
  Sex: Female

DRUGS (1)
  1. MIRENA [Suspect]
     Active Substance: LEVONORGESTREL
     Indication: CONTRACEPTION
     Dosage: 20  ?G PER DAY, CONTINUOUSLY
     Route: 015
     Dates: start: 20210427, end: 20210427

REACTIONS (3)
  - Procedural pain [None]
  - Complication of device insertion [None]
  - Post procedural discomfort [None]

NARRATIVE: CASE EVENT DATE: 20210427
